FAERS Safety Report 10207952 (Version 1)
Quarter: 2014Q2

REPORT INFORMATION
  Report Type: Spontaneous
  Country: US (occurrence: None)
  Receive Date: 20140529
  Receipt Date: 20140529
  Transmission Date: 20141212
  Serious: No
  Sender: FDA-Public Use
  Company Number: None

PATIENT
  Age: 20 Year
  Sex: Female
  Weight: 74.84 kg

DRUGS (2)
  1. CELEXA [Suspect]
     Indication: ANXIETY
     Route: 048
  2. CELEXA [Suspect]
     Indication: DEPRESSION
     Route: 048

REACTIONS (2)
  - Muscle spasms [None]
  - Menstruation delayed [None]
